FAERS Safety Report 23871687 (Version 1)
Quarter: 2024Q2

REPORT INFORMATION
  Report Type: Spontaneous
  Country: US (occurrence: US)
  Receive Date: 20240519
  Receipt Date: 20240519
  Transmission Date: 20240716
  Serious: Yes (Other)
  Sender: FDA-Public Use
  Company Number: US-E2BLSMVVAL-SPO/USA/24/0007028

PATIENT
  Age: 19 Year
  Sex: Female

DRUGS (4)
  1. ZENATANE [Suspect]
     Active Substance: ISOTRETINOIN
     Indication: Product used for unknown indication
     Dates: start: 20231030
  2. ZENATANE [Suspect]
     Active Substance: ISOTRETINOIN
     Dates: start: 20231202
  3. ZENATANE [Suspect]
     Active Substance: ISOTRETINOIN
     Dates: start: 20240105
  4. ZENATANE [Suspect]
     Active Substance: ISOTRETINOIN
     Dates: start: 20240208, end: 2024

REACTIONS (1)
  - Depression [Unknown]
